FAERS Safety Report 5866847-X (Version None)
Quarter: 2008Q3

REPORT INFORMATION
  Report Type: 
  Country: None (occurrence: None)
  Receive Date: 20080902
  Receipt Date: 20080825
  Transmission Date: 20090109
  Serious: Yes (Hospitalization)
  Sender: FDA-Public Use
  Company Number: CL-ROCHE-583371

PATIENT
  Age: 24 Year
  Sex: Female
  Weight: 64 kg

DRUGS (3)
  1. XENICAL [Suspect]
     Indication: OVERWEIGHT
     Route: 048
     Dates: start: 20080301, end: 20080726
  2. SIBUTRAMINE [Concomitant]
     Indication: OVERWEIGHT
     Dosage: DOSING FREQUENCY REPORTED : 4 CAPSULES / WEEK
     Route: 048
     Dates: start: 20080301, end: 20080726
  3. SENNA [Concomitant]
     Indication: LAXATIVE SUPPORTIVE CARE
     Route: 048
     Dates: end: 20080726

REACTIONS (2)
  - HAEMATOCHEZIA [None]
  - UPPER GASTROINTESTINAL HAEMORRHAGE [None]
